FAERS Safety Report 5153487-3 (Version None)
Quarter: 2006Q4

REPORT INFORMATION
  Report Type: 
  Country: None (occurrence: None)
  Receive Date: 20061117
  Receipt Date: 20061114
  Transmission Date: 20070319
  Serious: Yes (Hospitalization)
  Sender: FDA-Public Use
  Company Number: US-MERCK-0611USA04407

PATIENT
  Sex: Female

DRUGS (2)
  1. ZETIA [Suspect]
     Route: 048
     Dates: start: 20050101
  2. TRICOR [Concomitant]
     Route: 065

REACTIONS (1)
  - TRANSIENT ISCHAEMIC ATTACK [None]
